FAERS Safety Report 18473144 (Version 1)
Quarter: 2020Q4

REPORT INFORMATION
  Report Type: Spontaneous
  Country: TR (occurrence: TR)
  Receive Date: 20201106
  Receipt Date: 20201106
  Transmission Date: 20210114
  Serious: Yes (Life-Threatening, Other)
  Sender: FDA-Public Use
  Company Number: TR-GLAXOSMITHKLINE-TR2020TRK220047

PATIENT
  Sex: Female
  Weight: 80 kg

DRUGS (1)
  1. RELVAR ELLIPTA [Suspect]
     Active Substance: FLUTICASONE FUROATE\VILANTEROL TRIFENATATE
     Indication: ASTHMA
     Dosage: UNK, 100/25 UG
     Route: 055
     Dates: start: 20200904, end: 20200920

REACTIONS (6)
  - Cough [Not Recovered/Not Resolved]
  - Hypertension [Unknown]
  - Heart rate increased [Unknown]
  - Rhinorrhoea [Recovered/Resolved]
  - Palpitations [Unknown]
  - Dyspnoea [Unknown]
